FAERS Safety Report 26095829 (Version 1)
Quarter: 2025Q4

REPORT INFORMATION
  Report Type: Report from Study
  Country: US (occurrence: US)
  Receive Date: 20251127
  Receipt Date: 20251127
  Transmission Date: 20260118
  Serious: Yes (Other)
  Sender: ABBVIE
  Company Number: US-ABBVIE-6563812

PATIENT
  Age: 49 Year
  Sex: Female

DRUGS (2)
  1. HUMIRA [Suspect]
     Active Substance: ADALIMUMAB
     Indication: Product used for unknown indication
     Dosage: FIRST ADMIN DATE- UNK
     Route: 058
     Dates: end: 2025
  2. HUMIRA [Suspect]
     Active Substance: ADALIMUMAB
     Dosage: RESTARTED DOSE
     Route: 058
     Dates: start: 2025

REACTIONS (3)
  - Dental implantation [Unknown]
  - Complication associated with device [Unknown]
  - Device related infection [Unknown]

NARRATIVE: CASE EVENT DATE: 20120101
